FAERS Safety Report 9330187 (Version 2)
Quarter: 2014Q2

REPORT INFORMATION
  Report Type: Spontaneous
  Country: US (occurrence: US)
  Receive Date: 20130604
  Receipt Date: 20140521
  Transmission Date: 20141212
  Serious: Yes (Hospitalization)
  Sender: FDA-Public Use
  Company Number: US-B.I. PHARMACEUTICALS,INC./RIDGEFIELD-2013-BI-15588BP

PATIENT
  Sex: Female
  Weight: 47.63 kg

DRUGS (12)
  1. PRADAXA [Suspect]
     Indication: ANTICOAGULANT THERAPY
     Dosage: 300 MG
     Route: 048
     Dates: start: 20111120, end: 20111128
  2. PRADAXA [Suspect]
     Indication: ATRIAL FIBRILLATION
  3. CARVEDILOL [Concomitant]
     Route: 065
  4. RESTORIL [Concomitant]
     Route: 048
  5. MULTAQ [Concomitant]
     Dosage: 800 MG
     Route: 048
  6. LISINOPRIL [Concomitant]
     Dosage: 20 MG
     Route: 048
  7. TOPROL-XL [Concomitant]
     Dosage: 50 MG
     Route: 048
  8. PRAVACHOL [Concomitant]
     Dosage: 20 MG
     Route: 065
  9. AMLODIPINE BESYLATE [Concomitant]
     Route: 065
  10. ASPIRIN [Concomitant]
     Route: 065
  11. LUMIGAN [Concomitant]
     Dosage: FORMULATION: OPHTHALMIC DROPS
     Route: 065
  12. COMBIGAN [Concomitant]
     Dosage: FORMULATION: OPHTHALMIC DROPS
     Route: 065

REACTIONS (3)
  - Lower gastrointestinal haemorrhage [Recovered/Resolved]
  - Haemorrhagic anaemia [Unknown]
  - Coagulopathy [Recovered/Resolved]
